FAERS Safety Report 5525344-1 (Version None)
Quarter: 2007Q4

REPORT INFORMATION
  Report Type: 
  Country: None (occurrence: None)
  Receive Date: 20071120
  Receipt Date: 20071003
  Transmission Date: 20080405
  Serious: No
  Sender: FDA-Public Use
  Company Number: US-1164297

PATIENT

DRUGS (1)
  1. NEVANAC [Suspect]
     Indication: MACULAR OEDEMA
     Dosage: OPHTHALMIC (A FEW WEEKS)
     Route: 047

REACTIONS (2)
  - CORNEAL HYPERTROPHY [None]
  - ULCERATIVE KERATITIS [None]
